FAERS Safety Report 7031689-9 (Version None)
Quarter: 2010Q4

REPORT INFORMATION
  Report Type: 
  Country: None (occurrence: None)
  Receive Date: 20101001
  Receipt Date: 20100921
  Transmission Date: 20110411
  Serious: Yes (Hospitalization)
  Sender: FDA-Public Use
  Company Number: 1000016448

PATIENT
  Age: 76 Year
  Sex: Male

DRUGS (1)
  1. MEMANTINE HCL [Suspect]
     Dosage: ORAL
     Route: 048
     Dates: start: 20091228, end: 20100129

REACTIONS (3)
  - AGGRESSION [None]
  - CONDITION AGGRAVATED [None]
  - MANIA [None]
